FAERS Safety Report 15227894 (Version 2)
Quarter: 2018Q3

REPORT INFORMATION
  Report Type: Report from Study
  Country: US (occurrence: US)
  Receive Date: 20180801
  Receipt Date: 20180927
  Transmission Date: 20181010
  Serious: Yes (Life-Threatening, Other)
  Sender: FDA-Public Use
  Company Number: PHEH2018US031641

PATIENT
  Sex: Female
  Weight: 60.8 kg

DRUGS (5)
  1. MYFORTIC [Suspect]
     Active Substance: MYCOPHENOLATE SODIUM
     Indication: CONNECTIVE TISSUE DISORDER
     Dosage: 360 MG, BID
     Route: 065
  2. MYFORTIC [Suspect]
     Active Substance: MYCOPHENOLATE SODIUM
     Indication: INTERSTITIAL LUNG DISEASE
  3. PNEUMOVAX VACCIN [Concomitant]
     Indication: PRODUCT USED FOR UNKNOWN INDICATION
     Route: 065
  4. MYFORTIC [Suspect]
     Active Substance: MYCOPHENOLATE SODIUM
     Indication: ANTINUCLEAR ANTIBODY POSITIVE
     Dosage: 360 MG, QD
     Route: 065
  5. PREDNISOLON [Concomitant]
     Active Substance: PREDNISOLONE
     Indication: PRODUCT USED FOR UNKNOWN INDICATION
     Dosage: 10 MG, UNK
     Route: 065

REACTIONS (12)
  - Feeling abnormal [Unknown]
  - Pneumonia [Unknown]
  - Fatigue [Unknown]
  - Mechanic^s hand [Unknown]
  - Product use in unapproved indication [Unknown]
  - Myositis [Unknown]
  - Gastrooesophageal reflux disease [Unknown]
  - Dyspnoea [Unknown]
  - Back injury [Recovering/Resolving]
  - Sinus bradycardia [Unknown]
  - Crepitations [Unknown]
  - Cough [Unknown]
